FAERS Safety Report 4741319-4 (Version None)
Quarter: 2005Q3

REPORT INFORMATION
  Report Type: 
  Country: None (occurrence: None)
  Receive Date: 20050810
  Receipt Date: 20050103
  Transmission Date: 20060218
  Serious: No
  Sender: FDA-Public Use
  Company Number: US-GLAXOSMITHKLINE-A0539121A

PATIENT
  Age: 24 Year
  Sex: Female
  Weight: 75 kg

DRUGS (2)
  1. PAXIL [Suspect]
     Indication: MAJOR DEPRESSION
     Dosage: 25MG UNKNOWN
     Route: 048
     Dates: start: 19960101, end: 20041201
  2. NO CONCURRENT MEDICATION [Concomitant]

REACTIONS (11)
  - CRYING [None]
  - DIZZINESS [None]
  - DRUG WITHDRAWAL SYNDROME [None]
  - HYPERHIDROSIS [None]
  - IMPAIRED DRIVING ABILITY [None]
  - LIBIDO INCREASED [None]
  - MIGRAINE [None]
  - PARAESTHESIA [None]
  - RESTLESS LEGS SYNDROME [None]
  - THIRST [None]
  - TINNITUS [None]
